FAERS Safety Report 7967035-3 (Version None)
Quarter: 2011Q4

REPORT INFORMATION
  Report Type: 
  Country: None (occurrence: None)
  Receive Date: 20111209
  Receipt Date: 20111129
  Transmission Date: 20120403
  Serious: Yes (Hospitalization, Other)
  Sender: FDA-Public Use
  Company Number: US-JNJFOC-20111200040

PATIENT
  Sex: Female
  Weight: 65.77 kg

DRUGS (2)
  1. AREDIA [Suspect]
     Indication: OSTEOPENIA
     Route: 042
     Dates: start: 20110801
  2. DURAGESIC-100 [Suspect]
     Indication: PAIN
     Route: 062
     Dates: start: 20020101

REACTIONS (19)
  - TOXICITY TO VARIOUS AGENTS [None]
  - TOOTH DISORDER [None]
  - POLYCYTHAEMIA [None]
  - ADRENAL DISORDER [None]
  - JOINT STIFFNESS [None]
  - MUSCULOSKELETAL STIFFNESS [None]
  - ASTHENIA [None]
  - URINE ANALYSIS ABNORMAL [None]
  - ABDOMINAL PAIN [None]
  - TREMOR [None]
  - PRODUCT QUALITY ISSUE [None]
  - NEUROPATHY PERIPHERAL [None]
  - PAIN IN EXTREMITY [None]
  - OSTEOPENIA [None]
  - NEOPLASM MALIGNANT [None]
  - BODY HEIGHT DECREASED [None]
  - BONE DISORDER [None]
  - SENSORY DISTURBANCE [None]
  - ARTHRALGIA [None]
